FAERS Safety Report 7770228-1 (Version None)
Quarter: 2011Q3

REPORT INFORMATION
  Report Type: 
  Country: None (occurrence: None)
  Receive Date: 20110922
  Receipt Date: 20110211
  Transmission Date: 20111222
  Serious: No
  Sender: FDA-Public Use
  Company Number: US-ASTRAZENECA-2011SE08364

PATIENT
  Age: 38 Year
  Sex: Female
  Weight: 59 kg

DRUGS (6)
  1. SYMBICORT [Concomitant]
     Indication: ASTHMA
     Dosage: 160/4.5, DAILY
     Route: 055
  2. ALBUTEROL SULFATE AUTOHALER [Concomitant]
     Indication: ASTHMA
  3. SEROQUEL XR [Suspect]
     Indication: OBSESSIVE-COMPULSIVE PERSONALITY DISORDER
     Route: 048
  4. IBUPROPHEN [Concomitant]
     Indication: NEURALGIA
  5. SEROQUEL XR [Suspect]
     Indication: DEPRESSION
     Route: 048
  6. SEROQUEL XR [Suspect]
     Indication: ANXIETY
     Route: 048

REACTIONS (3)
  - DRUG EFFECT DELAYED [None]
  - RESTLESS LEGS SYNDROME [None]
  - FEELING JITTERY [None]
